FAERS Safety Report 5826885-X (Version None)
Quarter: 2008Q3

REPORT INFORMATION
  Report Type: 
  Country: None (occurrence: None)
  Receive Date: 20080725
  Receipt Date: 20080717
  Transmission Date: 20090109
  Serious: Yes (Other)
  Sender: FDA-Public Use
  Company Number: 2008JP003343

PATIENT
  Age: 39 Year
  Sex: Female

DRUGS (4)
  1. PROGRAF [Suspect]
     Indication: RENAL TRANSPLANT
  2. BASILIXIMAB(BASILIXIMAB) FORMULATION UNKNOWN [Suspect]
     Indication: RENAL TRANSPLANT
  3. MYCOPHENOLATE MOFETIL (MYCOPHENOLATE MOFEITL) FORMULATION UNKNOWN [Concomitant]
  4. METHYLPREDNISOLONE (METHYLPREDNISONE) [Concomitant]

REACTIONS (5)
  - HYPOXIA [None]
  - LUNG INJURY [None]
  - NON-CARDIOGENIC PULMONARY OEDEMA [None]
  - PRODUCTIVE COUGH [None]
  - RESPIRATORY ALKALOSIS [None]
